FAERS Safety Report 4983764-8 (Version None)
Quarter: 2006Q1

REPORT INFORMATION
  Report Type: 
  Country: None (occurrence: None)
  Receive Date: 20060302
  Receipt Date: 20050520
  Transmission Date: 20060701
  Serious: No
  Sender: FDA-Public Use
  Company Number: 214671

PATIENT
  Age: 14 Year
  Sex: Male
  Weight: 66.8 kg

DRUGS (1)
  1. NUTROPIN [Suspect]
     Indication: GROWTH HORMONE DEFICIENCY
     Dosage: 2.6 MG, QD, SUBCUTANEOUS
     Route: 058
     Dates: start: 20041011

REACTIONS (1)
  - EPIPHYSIOLYSIS [None]
